FAERS Safety Report 15149699 (Version 3)
Quarter: 2021Q1

REPORT INFORMATION
  Report Type: Spontaneous
  Country: US (occurrence: US)
  Receive Date: 20180716
  Receipt Date: 20210113
  Transmission Date: 20210419
  Serious: No
  Sender: FDA-Public Use
  Company Number: US-VANDA PHARMACEUTICALS, INC-2018TASUS002184

PATIENT
  Sex: Male

DRUGS (1)
  1. HETLIOZ [Suspect]
     Active Substance: TASIMELTEON
     Indication: CIRCADIAN RHYTHM SLEEP DISORDER
     Dosage: 20 MG, QHS (EVERY 24 HRS 1 HOUR BEFORE BEDTIME SAME TIME QHS WITHOUT FOOD))
     Route: 048

REACTIONS (2)
  - Nightmare [Unknown]
  - Drug ineffective [Unknown]
